FAERS Safety Report 5858370-3 (Version None)
Quarter: 2008Q3

REPORT INFORMATION
  Report Type: 
  Country: None (occurrence: None)
  Receive Date: 20080822
  Receipt Date: 20080807
  Transmission Date: 20090109
  Serious: Yes (Hospitalization, Other)
  Sender: FDA-Public Use
  Company Number: 2008VX000005

PATIENT
  Age: 74 Year
  Sex: Male
  Weight: 68 kg

DRUGS (9)
  1. PERMAX [Suspect]
     Indication: PARKINSON'S DISEASE
     Dosage: 750 UG; PO, 1500 UG; PO
     Route: 048
     Dates: start: 20020204, end: 20020331
  2. PERMAX [Suspect]
     Indication: PARKINSON'S DISEASE
     Dosage: 750 UG; PO, 1500 UG; PO
     Route: 048
     Dates: start: 20020401, end: 20070505
  3. PERMAX [Suspect]
     Indication: PARKINSON'S DISEASE
     Dosage: 750 UG; PO, 1500 UG; PO
     Route: 048
     Dates: start: 20070528, end: 20071205
  4. CARBIDOPA + LEVODOPA [Concomitant]
  5. ARTANE [Concomitant]
  6. DOMIN [Concomitant]
  7. PRAMIPEXOLE DIHYDROCHLORIDE [Concomitant]
  8. DIHYDROCHLORIDE [Concomitant]
  9. DONEPEZIL HCL [Concomitant]

REACTIONS (11)
  - ATRIAL FIBRILLATION [None]
  - CARDIOMEGALY [None]
  - CHEST X-RAY ABNORMAL [None]
  - DRUG INEFFECTIVE [None]
  - HEPATIC CONGESTION [None]
  - MITRAL VALVE INCOMPETENCE [None]
  - OEDEMA GENITAL [None]
  - OEDEMA PERIPHERAL [None]
  - RIGHT VENTRICULAR FAILURE [None]
  - TRICUSPID VALVE INCOMPETENCE [None]
  - WEIGHT INCREASED [None]
